FAERS Safety Report 9418072 (Version 1)
Quarter: 2013Q3

REPORT INFORMATION
  Report Type: Spontaneous
  Country: DE (occurrence: DE)
  Receive Date: 20130724
  Receipt Date: 20130724
  Transmission Date: 20140515
  Serious: Yes (Other)
  Sender: FDA-Public Use
  Company Number: DE-B.I. PHARMACEUTICALS,INC./RIDGEFIELD-2011-DE-05547DE

PATIENT
  Age: 69 Year
  Sex: Female
  Weight: 67 kg

DRUGS (5)
  1. PRADAXA [Suspect]
     Indication: ATRIAL FIBRILLATION
     Dosage: 220 MG
     Dates: start: 20110919
  2. PRADAXA [Suspect]
     Dosage: 220 MG
     Route: 048
     Dates: start: 201202
  3. SOTALOL 80 MG [Concomitant]
     Dosage: 160 MG
     Dates: start: 2011
  4. BLOPRESS 4 MG [Concomitant]
     Dosage: 2 MG
     Dates: start: 20110823
  5. SPIRONOLACTON [Concomitant]
     Dosage: 12.5 NR

REACTIONS (7)
  - Haematuria [Recovered/Resolved]
  - Haematochezia [Recovered/Resolved]
  - Rectal polyp [Recovered/Resolved]
  - Colon adenoma [Recovered/Resolved]
  - Rectal haemorrhage [Recovered/Resolved]
  - Abdominal pain upper [Recovered/Resolved]
  - Nausea [Recovered/Resolved]
